FAERS Safety Report 4608961-2 (Version None)
Quarter: 2005Q1

REPORT INFORMATION
  Report Type: 
  Country: None (occurrence: None)
  Receive Date: 20050310
  Receipt Date: 20050304
  Transmission Date: 20050727
  Serious: Yes (Hospitalization)
  Sender: FDA-Public Use
  Company Number: THQ2005A00259

PATIENT
  Age: 69 Year
  Sex: Female

DRUGS (5)
  1. ZOTON FASTAB (LANSOPRAZOLE) TABLETS [Suspect]
     Indication: ASCITES
     Dosage: 30 MG (30 MG, 1 IN 1 D)
     Route: 048
     Dates: start: 20040901, end: 20041001
  2. ZOTON FASTAB (LANSOPRAZOLE) TABLETS [Suspect]
     Indication: HEPATIC CIRRHOSIS
     Dosage: 30 MG (30 MG, 1 IN 1 D)
     Route: 048
     Dates: start: 20040901, end: 20041001
  3. ZOCORD (SIMVASTATIN) TABLETS [Suspect]
     Indication: HYPERLIPIDAEMIA
     Dosage: 20 MG (20 MG, 1 IN 1 D)
     Route: 048
     Dates: start: 20010101
  4. CALCICHEW-D3 (LEKOVIT CA) [Concomitant]
  5. SPIRONOLACTONE (TABLETS) [Concomitant]

REACTIONS (4)
  - ADRENAL ADENOMA [None]
  - PETECHIAE [None]
  - TOXIC EPIDERMAL NECROLYSIS [None]
  - URTICARIA [None]
